FAERS Safety Report 14098997 (Version 5)
Quarter: 2025Q2

REPORT INFORMATION
  Report Type: Spontaneous
  Country: FR (occurrence: FR)
  Receive Date: 20171017
  Receipt Date: 20250624
  Transmission Date: 20250716
  Serious: Yes (Life-Threatening, Hospitalization, Other)
  Sender: SANOFI AVENTIS
  Company Number: None

PATIENT
  Age: 66 Year
  Sex: Male

DRUGS (8)
  1. RIFAMPIN [Interacting]
     Active Substance: RIFAMPIN
     Indication: Endocarditis staphylococcal
     Route: 065
  2. RIFAMPIN [Interacting]
     Active Substance: RIFAMPIN
     Indication: Staphylococcal infection
     Dosage: 600 MG,BID
     Route: 065
  3. CEFAZOLIN [Interacting]
     Active Substance: CEFAZOLIN
     Indication: Endocarditis staphylococcal
     Dosage: 4 G,QD
     Route: 042
  4. CEFAZOLIN [Interacting]
     Active Substance: CEFAZOLIN
     Indication: Staphylococcal infection
     Dosage: 8 G,QD
     Route: 042
  5. OXACILLIN [Concomitant]
     Active Substance: OXACILLIN SODIUM
     Indication: Endocarditis
     Route: 065
  6. OXACILLIN [Concomitant]
     Active Substance: OXACILLIN SODIUM
     Indication: Staphylococcal infection
  7. GENTAMICIN [Concomitant]
     Active Substance: GENTAMICIN
     Indication: Endocarditis
     Route: 065
  8. GENTAMICIN [Concomitant]
     Active Substance: GENTAMICIN
     Indication: Staphylococcal infection

REACTIONS (6)
  - Vitamin K decreased [Recovered/Resolved]
  - Hypovitaminosis [Recovered/Resolved]
  - Hypoprothrombinaemia [Recovered/Resolved]
  - Gastrointestinal haemorrhage [Recovered/Resolved]
  - Shock haemorrhagic [Recovered/Resolved]
  - Drug interaction [Recovered/Resolved]
